FAERS Safety Report 9112836 (Version 1)
Quarter: 2013Q1

REPORT INFORMATION
  Report Type: Spontaneous
  Country: US (occurrence: US)
  Receive Date: 20130211
  Receipt Date: 20130211
  Transmission Date: 20140127
  Serious: No
  Sender: FDA-Public Use
  Company Number: US-PFIZER INC-2013049661

PATIENT
  Sex: Male

DRUGS (9)
  1. VIAGRA [Suspect]
     Dosage: 25 MG, UNK
     Route: 048
  2. VIAGRA [Suspect]
     Dosage: 50 MG, UNK
     Route: 048
  3. OXYCODONE [Concomitant]
     Dosage: 30 MG, UNK
     Route: 048
  4. CITALOPRAM [Concomitant]
     Dosage: 10 MG, 1X/DAY
     Route: 048
  5. CLONAZEPAM [Concomitant]
     Dosage: 2 MG, 2X/DAY
     Route: 048
  6. AMLODIPINE [Concomitant]
     Dosage: 5 MG, 1X/DAY
     Route: 048
  7. ZOLPIDEM [Concomitant]
     Dosage: 10 MG, 1X/DAY
     Route: 048
  8. SUMATRIPTAN [Concomitant]
     Dosage: UNK
  9. PROAIR HFA [Concomitant]
     Dosage: UNK

REACTIONS (1)
  - Drug ineffective [Unknown]
